FAERS Safety Report 6411201-5 (Version None)
Quarter: 2009Q4

REPORT INFORMATION
  Report Type: 
  Country: None (occurrence: None)
  Receive Date: 20091019
  Receipt Date: 20091013
  Transmission Date: 20100525
  Serious: Yes (Hospitalization, Other)
  Sender: FDA-Public Use
  Company Number: 20085477

PATIENT
  Age: 58 Year
  Sex: Female
  Weight: 55 kg

DRUGS (11)
  1. BACLOFEN [Suspect]
     Indication: MUSCLE SPASTICITY
     Dosage: 195 MCG, DAILY, INTRATHECAL
     Route: 037
     Dates: start: 20061005
  2. GASTER-D [Concomitant]
  3. LUVOX [Concomitant]
  4. ALMARL [Concomitant]
  5. BUFFERIN [Concomitant]
  6. BLOPRESS [Concomitant]
  7. GALBLOCK [Concomitant]
  8. DEPAS  MAGLAX [Concomitant]
  9. LOXININ [Concomitant]
  10. LENDORMIN D [Concomitant]
  11. KELNAC [Concomitant]

REACTIONS (4)
  - CEREBROVASCULAR DISORDER [None]
  - DEVICE DISLOCATION [None]
  - DEVICE MALFUNCTION [None]
  - FALL [None]
